FAERS Safety Report 10580486 (Version 1)
Quarter: 2014Q4

REPORT INFORMATION
  Report Type: Spontaneous
  Country: IR (occurrence: IR)
  Receive Date: 20141113
  Receipt Date: 20141113
  Transmission Date: 20150529
  Serious: Yes (Hospitalization)
  Sender: FDA-Public Use
  Company Number: IR-CIPLA LTD.-2014IR01721

PATIENT

DRUGS (1)
  1. RISPERIDONE. [Suspect]
     Active Substance: RISPERIDONE
     Indication: TIC
     Dosage: STARTING DOSE OF 0.25 MG TITRATED Q4DAYS BASED ON BODY WEIGHT

REACTIONS (1)
  - Alcohol poisoning [Unknown]
